FAERS Safety Report 13275687 (Version 1)
Quarter: 2017Q1

REPORT INFORMATION
  Report Type: Spontaneous
  Country: US (occurrence: US)
  Receive Date: 20170228
  Receipt Date: 20170228
  Transmission Date: 20170428
  Serious: No
  Sender: FDA-Public Use
  Company Number: US-009507513-1702USA006645

PATIENT
  Age: 68 Year
  Sex: Female

DRUGS (2)
  1. BELSOMRA [Suspect]
     Active Substance: SUVOREXANT
     Indication: INSOMNIA
     Dosage: ONE 10 MG TABLET ONE TIME ONLY
     Route: 048
     Dates: start: 20170213, end: 20170213
  2. AMBIEN [Suspect]
     Active Substance: ZOLPIDEM TARTRATE
     Dosage: UNK

REACTIONS (8)
  - Adverse event [Unknown]
  - Feeling abnormal [Unknown]
  - Euphoric mood [Unknown]
  - Chest pain [Unknown]
  - Dry mouth [Unknown]
  - Paraesthesia oral [Recovering/Resolving]
  - Paraesthesia [Recovering/Resolving]
  - Sleep disorder [Unknown]

NARRATIVE: CASE EVENT DATE: 201702
